FAERS Safety Report 10811143 (Version 1)
Quarter: 2015Q1

REPORT INFORMATION
  Report Type: Spontaneous
  Country: US (occurrence: None)
  Receive Date: 20150213
  Receipt Date: 20150213
  Transmission Date: 20150721
  Serious: No
  Sender: FDA-Public Use
  Company Number: None

PATIENT
  Age: 81 Year
  Sex: Male
  Weight: 65.77 kg

DRUGS (4)
  1. TRANZPENE [Concomitant]
  2. ESTER-C [Concomitant]
     Active Substance: CALCIUM\VITAMINS
  3. ZOCOR [Concomitant]
     Active Substance: SIMVASTATIN
  4. PRAVASTATIN SODIUM. [Suspect]
     Active Substance: PRAVASTATIN SODIUM
     Indication: BLOOD CHOLESTEROL ABNORMAL
     Dosage: 1 AT NIGHT BY MOUTH
     Route: 048
     Dates: start: 20150107, end: 20150109

REACTIONS (5)
  - Abasia [None]
  - Chills [None]
  - Insomnia [None]
  - Feeding disorder [None]
  - Oral mucosal eruption [None]
